FAERS Safety Report 6769927-X (Version None)
Quarter: 2010Q2

REPORT INFORMATION
  Report Type: 
  Country: None (occurrence: None)
  Receive Date: 20100615
  Receipt Date: 20100611
  Transmission Date: 20101027
  Serious: Yes (Hospitalization)
  Sender: FDA-Public Use
  Company Number: A0864626A

PATIENT
  Age: 70 Year
  Sex: Male

DRUGS (8)
  1. AVANDIA [Suspect]
     Indication: DIABETES MELLITUS
     Dosage: 4MG PER DAY
     Route: 048
     Dates: start: 20040309, end: 20070531
  2. SIMVASTATIN [Concomitant]
     Dates: start: 20061201
  3. AMARYL [Concomitant]
  4. LIPITOR [Concomitant]
     Dates: end: 20061201
  5. TOPROL-XL [Concomitant]
  6. LEVOXYL [Concomitant]
  7. PLETAL [Concomitant]
     Dates: end: 20051201
  8. CARDURA [Concomitant]

REACTIONS (4)
  - AORTIC STENOSIS [None]
  - MUSCULOSKELETAL DISORDER [None]
  - MYOCARDIAL INFARCTION [None]
  - PAIN [None]
